FAERS Safety Report 4787012-3 (Version None)
Quarter: 2005Q3

REPORT INFORMATION
  Report Type: 
  Country: None (occurrence: None)
  Receive Date: 20050930
  Receipt Date: 20050210
  Transmission Date: 20060218
  Serious: Yes (Hospitalization)
  Sender: FDA-Public Use
  Company Number: 2005FR-00291

PATIENT
  Age: 73 Year
  Sex: Male

DRUGS (2)
  1. ASPIRIN [Suspect]
     Indication: PROPHYLAXIS
     Dosage: 75 MG, ORAL
     Route: 048
     Dates: start: 20031106, end: 20040917
  2. THIAMINE B COMPLEX [Concomitant]

REACTIONS (5)
  - DUODENAL ULCER HAEMORRHAGE [None]
  - DUODENITIS [None]
  - GASTRITIS EROSIVE [None]
  - HAEMATEMESIS [None]
  - OESOPHAGITIS [None]
